FAERS Safety Report 5719442-7 (Version None)
Quarter: 2008Q2

REPORT INFORMATION
  Report Type: 
  Country: None (occurrence: None)
  Receive Date: 20080428
  Receipt Date: 20080423
  Transmission Date: 20081010
  Serious: Yes (Hospitalization)
  Sender: FDA-Public Use
  Company Number: FR-BRISTOL-MYERS SQUIBB COMPANY-14163232

PATIENT
  Age: 79 Year
  Sex: Male

DRUGS (6)
  1. COAPROVEL [Suspect]
     Dates: start: 20050101, end: 20080125
  2. TENORMIN [Suspect]
     Dates: start: 20050101, end: 20080125
  3. ZANIDIP [Suspect]
     Dates: start: 20050101
  4. LANTUS [Concomitant]
     Dates: start: 20050101
  5. NOVONORM [Concomitant]
     Dates: start: 20050101
  6. SIMVASTATIN [Concomitant]
     Dates: start: 20050101

REACTIONS (11)
  - ATRIOVENTRICULAR BLOCK [None]
  - CONDITION AGGRAVATED [None]
  - FALL [None]
  - HEADACHE [None]
  - HOT FLUSH [None]
  - JOINT DISLOCATION [None]
  - LIMB INJURY [None]
  - LOSS OF CONSCIOUSNESS [None]
  - ORTHOSTATIC HYPOTENSION [None]
  - RENAL FAILURE [None]
  - WHITE BLOOD CELL COUNT INCREASED [None]
